FAERS Safety Report 8122049-8 (Version None)
Quarter: 2012Q1

REPORT INFORMATION
  Report Type: 
  Country: None (occurrence: None)
  Receive Date: 20120208
  Receipt Date: 20120127
  Transmission Date: 20120608
  Serious: Yes (Hospitalization, Disabling)
  Sender: FDA-Public Use
  Company Number: US-BAYER-2011-042331

PATIENT
  Sex: Female
  Weight: 96 kg

DRUGS (5)
  1. YAZ [Suspect]
     Indication: ACNE
     Dosage: UNK
     Dates: start: 20090513, end: 20090622
  2. FLUCONAZOLE [Concomitant]
     Indication: FUNGAL INFECTION
     Dosage: UNK
     Dates: start: 20090602, end: 20090608
  3. CLINDAMYCIN [Concomitant]
     Dosage: UNK
     Dates: start: 20090310, end: 20090317
  4. TERCONAZOLE [Concomitant]
     Indication: FUNGAL INFECTION
     Dosage: UNK
     Dates: start: 20090602, end: 20090609
  5. YAZ [Suspect]
     Indication: MENSTRUATION IRREGULAR

REACTIONS (9)
  - EMOTIONAL DISTRESS [None]
  - PULMONARY EMBOLISM [None]
  - CHEST PAIN [None]
  - OEDEMA PERIPHERAL [None]
  - DEEP VEIN THROMBOSIS [None]
  - PAIN IN EXTREMITY [None]
  - INSOMNIA [None]
  - DYSPNOEA [None]
  - ANXIETY [None]
